FAERS Safety Report 8531289-5 (Version None)
Quarter: 2012Q3

REPORT INFORMATION
  Report Type: 
  Country: None (occurrence: None)
  Receive Date: 20120710
  Receipt Date: 20120627
  Transmission Date: 20120928
  Serious: Yes (Death)
  Sender: FDA-Public Use
  Company Number: UTC-020458

PATIENT
  Age: 83 Year
  Sex: Male
  Weight: 70.45 kg

DRUGS (2)
  1. TYVASO [Suspect]
     Indication: PULMONARY ARTERIAL HYPERTENSION
     Dosage: 18-54 MICROGRAMS, INHALATION
     Route: 055
     Dates: start: 20100402
  2. LETAIRIS [Concomitant]

REACTIONS (1)
  - DEATH [None]
